FAERS Safety Report 24906459 (Version 2)
Quarter: 2025Q1

REPORT INFORMATION
  Report Type: Report from Study
  Country: ES (occurrence: ES)
  Receive Date: 20250130
  Receipt Date: 20250131
  Transmission Date: 20250409
  Serious: Yes (Death)
  Sender: PFIZER
  Company Number: ES-ROCHE-3011760

PATIENT
  Age: 67 Year
  Sex: Male
  Weight: 89.5 kg

DRUGS (12)
  1. BEVACIZUMAB [Suspect]
     Active Substance: BEVACIZUMAB
     Indication: Non-small cell lung cancer
     Route: 065
     Dates: start: 20211109
  2. CARBOPLATIN [Suspect]
     Active Substance: CARBOPLATIN
     Indication: Non-small cell lung cancer metastatic
     Route: 065
     Dates: start: 20211130
  3. PACLITAXEL [Suspect]
     Active Substance: PACLITAXEL
     Route: 065
     Dates: start: 20211109
  4. ATEZOLIZUMAB [Suspect]
     Active Substance: ATEZOLIZUMAB
     Indication: Non-small cell lung cancer
     Route: 042
     Dates: start: 20211109
  5. AMLODIPINE [Concomitant]
     Active Substance: AMLODIPINE BESYLATE
     Dosage: UNK, 1X/DAY
     Dates: start: 20111220
  6. PYRIDOXINE [Concomitant]
     Active Substance: PYRIDOXINE
     Dosage: UNK, 1X/DAY
     Dates: start: 20210423
  7. TORSEMIDE [Concomitant]
     Active Substance: TORSEMIDE
     Dosage: UNK, 1X/DAY
     Dates: start: 20150427
  8. VALSARTAN [Concomitant]
     Active Substance: VALSARTAN
     Dates: start: 20111220
  9. LANSOPRAZOLE [Concomitant]
     Active Substance: LANSOPRAZOLE
     Indication: Prophylaxis
     Dosage: UNK, 1X/DAY
     Dates: start: 20171004
  10. ATORVASTATIN [Concomitant]
     Active Substance: ATORVASTATIN
     Dosage: UNK, 1X/DAY
     Dates: start: 20171004
  11. ISONIAZID [Concomitant]
     Active Substance: ISONIAZID
     Dosage: UNK, 1X/DAY
     Dates: start: 20210423
  12. APIXABAN [Concomitant]
     Active Substance: APIXABAN
     Dosage: UNK, 2X/DAY
     Dates: start: 20210217

REACTIONS (2)
  - Death [Fatal]
  - Nausea [Recovered/Resolved]

NARRATIVE: CASE EVENT DATE: 20211228
